FAERS Safety Report 5332624-1 (Version None)
Quarter: 2007Q2

REPORT INFORMATION
  Report Type: 
  Country: None (occurrence: None)
  Receive Date: 20070523
  Receipt Date: 20070512
  Transmission Date: 20071010
  Serious: Yes (Other)
  Sender: FDA-Public Use
  Company Number: US-PFIZER INC-2007018902

PATIENT
  Age: 89 Year
  Sex: Female
  Weight: 83.5 kg

DRUGS (2)
  1. LYRICA [Suspect]
     Indication: NEURALGIA
     Route: 048
  2. HYDROCODONE BITARTRATE [Concomitant]

REACTIONS (1)
  - DEMENTIA [None]
